FAERS Safety Report 18388515 (Version 4)
Quarter: 2021Q1

REPORT INFORMATION
  Report Type: Report from Study
  Country: US (occurrence: US)
  Receive Date: 20201015
  Receipt Date: 20210114
  Transmission Date: 20210419
  Serious: No
  Sender: FDA-Public Use
  Company Number: NVSC2020US272078

PATIENT
  Sex: Male

DRUGS (2)
  1. COSENTYX [Suspect]
     Active Substance: SECUKINUMAB
     Indication: PSORIATIC ARTHROPATHY
  2. COSENTYX [Suspect]
     Active Substance: SECUKINUMAB
     Indication: PSORIASIS
     Dosage: 300 MG(ONCE A WEEK FOR 5 WEEKS AND THEN Q 4 WEEK)
     Route: 058
     Dates: start: 20201004

REACTIONS (5)
  - Arthralgia [Recovering/Resolving]
  - Erythema [Unknown]
  - Oropharyngeal pain [Unknown]
  - Headache [Unknown]
  - Abdominal discomfort [Unknown]
